FAERS Safety Report 6726578-0 (Version None)
Quarter: 2010Q2

REPORT INFORMATION
  Report Type: 
  Country: None (occurrence: None)
  Receive Date: 20100514
  Receipt Date: 20100503
  Transmission Date: 20101027
  Serious: Yes (Other)
  Sender: FDA-Public Use
  Company Number: US-ELI_LILLY_AND_COMPANY-US201002001033

PATIENT
  Sex: Female

DRUGS (11)
  1. CYMBALTA [Suspect]
     Indication: DEPRESSION
     Dosage: 60 MG, DAILY (1/D)
     Route: 065
     Dates: end: 20090901
  2. FOSAMAX [Concomitant]
     Dates: end: 20090801
  3. NORVASC [Concomitant]
     Dates: end: 20090801
  4. METHIMAZOLE [Concomitant]
  5. LORAZEPAM [Concomitant]
     Dosage: 1 MG, 2/D
  6. BUSPIRONE HCL [Concomitant]
     Dosage: 15 MG, 2/D
  7. PREMARIN [Concomitant]
     Dosage: 0.625 UNK, AS NEEDED
  8. OMEPRAZOLE [Concomitant]
     Dosage: 20 MG, EACH MORNING
  9. MULTI-VITAMIN [Concomitant]
  10. CALCIUM [Concomitant]
     Dosage: 600 MG, 2/D
  11. TYLENOL                                 /SCH/ [Concomitant]
     Dosage: 1 D/F, AS NEEDED

REACTIONS (4)
  - BLOOD THYROID STIMULATING HORMONE ABNORMAL [None]
  - HEPATIC CYST [None]
  - PANCREATITIS ACUTE [None]
  - THYROXINE FREE ABNORMAL [None]
